FAERS Safety Report 8621604-6 (Version None)
Quarter: 2012Q3

REPORT INFORMATION
  Report Type: 
  Country: None (occurrence: None)
  Receive Date: 20120820
  Receipt Date: 20120820
  Transmission Date: 20120928
  Serious: No
  Sender: FDA-Public Use
  Company Number: None

PATIENT
  Age: 61 Year
  Sex: Male

DRUGS (2)
  1. PEGASYS [Suspect]
     Indication: HEPATITIS C
     Dosage: 180MCG, QW, SQ
     Dates: start: 20120617, end: 20120630
  2. RIBAVIRIN [Suspect]
     Indication: HEPATITIS C
     Dosage: 200MG, TID, PO
     Route: 048
     Dates: start: 20120617, end: 20120630

REACTIONS (2)
  - FATIGUE [None]
  - ASTHENIA [None]
